FAERS Safety Report 8326181-5 (Version None)
Quarter: 2012Q2

REPORT INFORMATION
  Report Type: 
  Country: None (occurrence: None)
  Receive Date: 20120427
  Receipt Date: 20120412
  Transmission Date: 20120825
  Serious: Yes (Death)
  Sender: FDA-Public Use
  Company Number: 2012MA005040

PATIENT
  Age: 46 Year
  Sex: Male

DRUGS (3)
  1. DEXAMETHASONE [Suspect]
     Dosage: 4 MG;QID;PO
     Route: 048
  2. PHENYTOIN [Suspect]
     Indication: CONVULSION
     Dosage: 300 MG;QD;PO
     Route: 048
  3. RADIATION THERAPY [Concomitant]

REACTIONS (3)
  - ERYTHEMA MULTIFORME [None]
  - SEPSIS [None]
  - ACUTE RESPIRATORY DISTRESS SYNDROME [None]
